FAERS Safety Report 19712692 (Version 2)
Quarter: 2021Q3

REPORT INFORMATION
  Report Type: Spontaneous
  Country: HR (occurrence: HR)
  Receive Date: 20210816
  Receipt Date: 20210913
  Transmission Date: 20211014
  Serious: Yes (Other)
  Sender: FDA-Public Use
  Company Number: HR-ROCHE-2887595

PATIENT
  Age: 69 Year
  Sex: Male

DRUGS (3)
  1. REBETOL [Suspect]
     Active Substance: RIBAVIRIN
     Indication: CHRONIC HEPATITIS C
     Route: 048
     Dates: start: 2013
  2. PEGASYS [Suspect]
     Active Substance: PEGINTERFERON ALFA-2A
     Indication: CHRONIC HEPATITIS C
     Route: 065
     Dates: start: 2013
  3. ZEPATIER [Suspect]
     Active Substance: ELBASVIR\GRAZOPREVIR
     Indication: PRODUCT USED FOR UNKNOWN INDICATION
     Dosage: ON 17/MAR/2021, LAST ADMINISTRATION DATE
     Route: 048
     Dates: start: 20201223

REACTIONS (4)
  - Splenomegaly [Unknown]
  - Therapy partial responder [Unknown]
  - Varices oesophageal [Unknown]
  - Hepatic cirrhosis [Unknown]
